FAERS Safety Report 7506025-1 (Version None)
Quarter: 2011Q2

REPORT INFORMATION
  Report Type: 
  Country: None (occurrence: None)
  Receive Date: 20110526
  Receipt Date: 20110518
  Transmission Date: 20111010
  Serious: Yes (Hospitalization)
  Sender: FDA-Public Use
  Company Number: JP-ROCHE-778373

PATIENT
  Sex: Female

DRUGS (29)
  1. TOCILIZUMAB [Suspect]
     Route: 041
     Dates: start: 20080805, end: 20080805
  2. TOCILIZUMAB [Suspect]
     Route: 041
     Dates: start: 20090414, end: 20090414
  3. TOCILIZUMAB [Suspect]
     Route: 041
     Dates: start: 20080708, end: 20080708
  4. TOCILIZUMAB [Suspect]
     Route: 041
     Dates: start: 20081222, end: 20081222
  5. TOCILIZUMAB [Suspect]
     Route: 041
     Dates: start: 20090217, end: 20090217
  6. TOCILIZUMAB [Suspect]
     Route: 041
     Dates: start: 20090317, end: 20090317
  7. TOCILIZUMAB [Suspect]
     Indication: RHEUMATOID ARTHRITIS
     Route: 041
     Dates: start: 20080515, end: 20080515
  8. TOCILIZUMAB [Suspect]
     Route: 041
     Dates: start: 20090609, end: 20090609
  9. TOCILIZUMAB [Suspect]
     Route: 041
     Dates: start: 20090929, end: 20090929
  10. TOCILIZUMAB [Suspect]
     Dosage: DISCONTINUED
     Route: 041
     Dates: start: 20091027, end: 20091027
  11. METHOTREXATE [Suspect]
     Route: 048
     Dates: start: 20091219, end: 20100511
  12. FOLIC ACID [Concomitant]
     Route: 048
     Dates: start: 20091219, end: 20100511
  13. TOCILIZUMAB [Suspect]
     Route: 041
     Dates: start: 20081125, end: 20081125
  14. TOCILIZUMAB [Suspect]
     Route: 041
     Dates: start: 20090512, end: 20090512
  15. METHOTREXATE [Suspect]
     Indication: RHEUMATOID ARTHRITIS
     Route: 048
     Dates: end: 20080616
  16. METHOTREXATE [Suspect]
     Route: 048
     Dates: end: 20080617
  17. TOCILIZUMAB [Suspect]
     Route: 041
     Dates: start: 20090901, end: 20090901
  18. TOCILIZUMAB [Suspect]
     Route: 041
     Dates: start: 20080930, end: 20080930
  19. METHOTREXATE [Suspect]
     Route: 048
     Dates: start: 20090515, end: 20091027
  20. CRESTOR [Concomitant]
     Route: 048
     Dates: start: 20090515, end: 20091027
  21. TOCILIZUMAB [Suspect]
     Route: 041
     Dates: start: 20080611, end: 20080611
  22. TOCILIZUMAB [Suspect]
     Route: 041
     Dates: start: 20080902, end: 20080902
  23. TOCILIZUMAB [Suspect]
     Route: 041
     Dates: start: 20081028, end: 20081028
  24. TOCILIZUMAB [Suspect]
     Route: 041
     Dates: start: 20090120, end: 20090120
  25. TOCILIZUMAB [Suspect]
     Route: 041
     Dates: start: 20090707, end: 20090707
  26. TOCILIZUMAB [Suspect]
     Route: 041
     Dates: start: 20090804, end: 20090804
  27. FOLIC ACID [Concomitant]
     Route: 048
     Dates: start: 20090515, end: 20091027
  28. BONALON [Concomitant]
     Route: 048
     Dates: start: 20090515, end: 20091027
  29. BONALON [Concomitant]
     Route: 048
     Dates: start: 20091219, end: 20100511

REACTIONS (2)
  - PNEUMONIA [None]
  - MUSCULOSKELETAL CHEST PAIN [None]
